FAERS Safety Report 10260501 (Version 1)
Quarter: 2014Q2

REPORT INFORMATION
  Report Type: Spontaneous
  Country: US (occurrence: US)
  Receive Date: 20140626
  Receipt Date: 20140626
  Transmission Date: 20141212
  Serious: Yes (Hospitalization, Other)
  Sender: FDA-Public Use
  Company Number: US-ABBVIE-14P-163-1248384-00

PATIENT
  Sex: 0

DRUGS (4)
  1. CREON [Suspect]
     Indication: PRODUCT USED FOR UNKNOWN INDICATION
  2. MS-CONTIN [Concomitant]
     Indication: PAIN
  3. MORPHINE [Concomitant]
     Indication: PAIN
  4. NEURONTIN [Concomitant]
     Indication: NEURALGIA

REACTIONS (7)
  - Pancreatitis [Unknown]
  - Cholecystitis [Unknown]
  - Malaise [Unknown]
  - Unevaluable event [Unknown]
  - Fibromyalgia [Unknown]
  - Vision blurred [Unknown]
  - Bipolar disorder [Unknown]
